FAERS Safety Report 7189245-8 (Version None)
Quarter: 2010Q4

REPORT INFORMATION
  Report Type: 
  Country: None (occurrence: None)
  Receive Date: 20101222
  Receipt Date: 20100805
  Transmission Date: 20110411
  Serious: No
  Sender: FDA-Public Use
  Company Number: US-AMGEN-KDL428315

PATIENT

DRUGS (1)
  1. ENBREL [Suspect]
     Indication: RHEUMATOID ARTHRITIS
     Dosage: 25 MG, QWK
     Route: 058
     Dates: start: 20041105

REACTIONS (7)
  - ACCIDENT [None]
  - BLISTER [None]
  - FALL [None]
  - FRACTURE [None]
  - HEADACHE [None]
  - NERVOUSNESS [None]
  - PAIN IN EXTREMITY [None]
